FAERS Safety Report 23554969 (Version 2)
Quarter: 2024Q1

REPORT INFORMATION
  Report Type: Spontaneous
  Country: US (occurrence: US)
  Receive Date: 20240222
  Receipt Date: 20240312
  Transmission Date: 20240410
  Serious: No
  Sender: FDA-Public Use
  Company Number: US-JNJFOC-20240210857

PATIENT
  Sex: Female

DRUGS (1)
  1. TYLENOL [Suspect]
     Active Substance: ACETAMINOPHEN
     Indication: Product used for unknown indication
     Dosage: TAKING THE 650 MG 2 TABLETS IN THE MORNING, AND 2 TABLETS IN THE EVENING
     Route: 065

REACTIONS (2)
  - Contusion [Unknown]
  - Inappropriate schedule of product administration [Unknown]
